FAERS Safety Report 6559244-5 (Version None)
Quarter: 2010Q1

REPORT INFORMATION
  Report Type: 
  Country: None (occurrence: None)
  Receive Date: 20100129
  Receipt Date: 20091005
  Transmission Date: 20100710
  Serious: Yes (Hospitalization)
  Sender: FDA-Public Use
  Company Number: US-ABBOTT-09P-163-0590529-00

PATIENT
  Sex: Female
  Weight: 74.91 kg

DRUGS (3)
  1. HUMIRA [Suspect]
     Indication: CROHN'S DISEASE
     Dosage: 1ST PART OF LOADING DOSE
     Dates: start: 20090804, end: 20090804
  2. HUMIRA [Suspect]
     Dosage: 2 ND PART OF LOADING DOSE
     Dates: start: 20090805
  3. CEFDINIR [Suspect]

REACTIONS (3)
  - DYSPNOEA [None]
  - FUNGAL INFECTION [None]
  - PNEUMONIA [None]
